FAERS Safety Report 5786412-2 (Version None)
Quarter: 2008Q2

REPORT INFORMATION
  Report Type: 
  Country: None (occurrence: None)
  Receive Date: 20080624
  Receipt Date: 20080616
  Transmission Date: 20081010
  Serious: Yes (Death)
  Sender: FDA-Public Use
  Company Number: FR-PFIZER INC-2008025318

PATIENT
  Sex: Female

DRUGS (6)
  1. ALDACTONE [Suspect]
  2. ATENOLOL [Suspect]
  3. ACTOS [Suspect]
  4. INSULIN [Suspect]
     Indication: TYPE 1 DIABETES MELLITUS
  5. COAPROVEL [Suspect]
     Dosage: TEXT:1DF-FREQ:DAILY
  6. PLAVIX [Suspect]
     Dosage: TEXT:1DF-FREQ:DAILY

REACTIONS (1)
  - SUDDEN DEATH [None]
